FAERS Safety Report 6987230-X (Version None)
Quarter: 2010Q3

REPORT INFORMATION
  Report Type: 
  Country: None (occurrence: None)
  Receive Date: 20100825
  Receipt Date: 20100719
  Transmission Date: 20110219
  Serious: No
  Sender: FDA-Public Use
  Company Number: 201005003

PATIENT
  Age: 65 Year
  Sex: Male
  Weight: 88.4514 kg

DRUGS (1)
  1. XIAFLEX [Suspect]
     Indication: DUPUYTREN'S CONTRACTURE
     Dosage: INTRALESIONAL
     Route: 026
     Dates: start: 20100401, end: 20100401

REACTIONS (2)
  - INJECTION SITE PAIN [None]
  - OEDEMA PERIPHERAL [None]
